FAERS Safety Report 21289813 (Version 1)
Quarter: 2022Q3

REPORT INFORMATION
  Report Type: Spontaneous
  Country: US (occurrence: US)
  Receive Date: 20220902
  Receipt Date: 20220902
  Transmission Date: 20221027
  Serious: Yes (Hospitalization)
  Sender: FDA-Public Use
  Company Number: US-BAYER-2022A121124

PATIENT
  Age: 76 Year
  Sex: Male

DRUGS (17)
  1. ADEMPAS [Suspect]
     Active Substance: RIOCIGUAT
     Indication: Pulmonary hypertension
     Dosage: UNK
  2. ADEMPAS [Suspect]
     Active Substance: RIOCIGUAT
     Indication: Pulmonary hypertension
     Dosage: 2.5 MG, TID
     Dates: start: 20190213
  3. CITRACAL + D3 [Concomitant]
  4. LASIX [Concomitant]
     Active Substance: FUROSEMIDE
     Indication: Oedema peripheral
  5. FOSAMAX [Concomitant]
     Active Substance: ALENDRONATE SODIUM
  6. AMLODIPINE [Concomitant]
     Active Substance: AMLODIPINE BESYLATE
  7. MONTELUKAST [Concomitant]
     Active Substance: MONTELUKAST SODIUM
  8. PLAVIX [Concomitant]
     Active Substance: CLOPIDOGREL BISULFATE
  9. BISOPROLOL [Concomitant]
     Active Substance: BISOPROLOL
  10. ROSUVASTATIN [Concomitant]
     Active Substance: ROSUVASTATIN
  11. PANTOPRAZOLE [Concomitant]
     Active Substance: PANTOPRAZOLE
  12. WARFARIN [Concomitant]
     Active Substance: WARFARIN
  13. INSULIN LISPRO [Concomitant]
     Active Substance: INSULIN LISPRO
  14. INSULIN BEEF [Concomitant]
     Active Substance: INSULIN BEEF
  15. LIDODERM [Concomitant]
     Active Substance: LIDOCAINE
  16. LEXAPRO [Concomitant]
     Active Substance: ESCITALOPRAM OXALATE
  17. OXYGEN [Concomitant]
     Active Substance: OXYGEN

REACTIONS (4)
  - Acute left ventricular failure [None]
  - Deep vein thrombosis [None]
  - Cellulitis [Not Recovered/Not Resolved]
  - Oedema peripheral [None]

NARRATIVE: CASE EVENT DATE: 20220822
